FAERS Safety Report 18101224 (Version 2)
Quarter: 2022Q2

REPORT INFORMATION
  Report Type: Report from Study
  Country: US (occurrence: US)
  Receive Date: 20200801
  Receipt Date: 20220525
  Transmission Date: 20220721
  Serious: No
  Sender: FDA-Public Use
  Company Number: US-NOVARTISTESTPH-NVSC2020US215100

PATIENT
  Sex: Male

DRUGS (1)
  1. ENTRESTO [Suspect]
     Active Substance: SACUBITRIL\VALSARTAN
     Indication: Product used for unknown indication
     Dosage: UNK, TAKES 1 TABLET PER DAY INSTEAD OF 2 PER DAY
     Route: 065

REACTIONS (3)
  - Energy increased [Unknown]
  - Product packaging quantity issue [Unknown]
  - Incorrect dose administered [Unknown]
